FAERS Safety Report 8762877 (Version 3)
Quarter: 2012Q4

REPORT INFORMATION
  Report Type: 
  Country: US (occurrence: US)
  Receive Date: 20120830
  Receipt Date: 20121114
  Transmission Date: 20130627
  Serious: No
  Sender: FDA-Public Use
  Company Number: US-PFIZER INC-2012211288

PATIENT
  Age: 68 Year
  Sex: Female

DRUGS (4)
  1. LYRICA [Suspect]
     Indication: SHINGLES
     Dosage: 100 mg, UNK
     Route: 048
  2. LYRICA [Suspect]
     Dosage: 75 mg, 3x/day
     Route: 048
     Dates: start: 201206, end: 201208
  3. LYRICA [Suspect]
     Dosage: 75 mg, 1x/day (qd x 1wk)
     Route: 048
  4. LORTAB [Concomitant]
     Dosage: 5/500, q 6 PRN

REACTIONS (5)
  - Hyperhidrosis [Recovering/Resolving]
  - Nausea [Recovering/Resolving]
  - Anxiety [Unknown]
  - Retching [Recovering/Resolving]
  - Chills [Recovering/Resolving]
